FAERS Safety Report 8514272-5 (Version None)
Quarter: 2012Q3

REPORT INFORMATION
  Report Type: 
  Country: None (occurrence: None)
  Receive Date: 20120717
  Receipt Date: 20120713
  Transmission Date: 20120928
  Serious: Yes (Life-Threatening, Other)
  Sender: FDA-Public Use
  Company Number: GB-PFIZER INC-2012168859

PATIENT
  Age: 43 Year
  Sex: Male
  Weight: 95.25 kg

DRUGS (2)
  1. VARENICLINE TARTRATE [Suspect]
     Dosage: UNK
     Dates: start: 20120103, end: 20120114
  2. METHYLPHENIDATE [Concomitant]
     Dosage: UNK

REACTIONS (2)
  - GALLBLADDER OBSTRUCTION [None]
  - PANCREATITIS [None]
